FAERS Safety Report 4689861-9 (Version None)
Quarter: 2005Q2

REPORT INFORMATION
  Report Type: 
  Country: None (occurrence: None)
  Receive Date: 20050614
  Receipt Date: 20050609
  Transmission Date: 20051028
  Serious: Yes (Hospitalization)
  Sender: FDA-Public Use
  Company Number: US-JNJFOC-20050602858

PATIENT
  Age: 57 Year
  Sex: Female

DRUGS (1)
  1. LEVAQUIN [Suspect]

REACTIONS (3)
  - BLOOD CREATININE INCREASED [None]
  - CROHN'S DISEASE [None]
  - PYELONEPHRITIS [None]
